FAERS Safety Report 14168831 (Version 7)
Quarter: 2018Q1

REPORT INFORMATION
  Report Type: Spontaneous
  Country: AU (occurrence: AU)
  Receive Date: 20171107
  Receipt Date: 20180329
  Transmission Date: 20180508
  Serious: Yes (Hospitalization)
  Sender: FDA-Public Use
  Company Number: AU-BIOGEN-2017BI00481208

PATIENT
  Age: 46 Year
  Sex: Female

DRUGS (1)
  1. ZINBRYTA [Suspect]
     Active Substance: DACLIZUMAB
     Indication: RELAPSING-REMITTING MULTIPLE SCLEROSIS
     Route: 058
     Dates: start: 201707

REACTIONS (3)
  - Colitis [Unknown]
  - Toxic skin eruption [Not Recovered/Not Resolved]
  - Anaphylactic reaction [Unknown]
